FAERS Safety Report 8350306-9 (Version None)
Quarter: 2012Q2

REPORT INFORMATION
  Report Type: 
  Country: None (occurrence: None)
  Receive Date: 20120510
  Receipt Date: 20120504
  Transmission Date: 20120825
  Serious: Yes (Other)
  Sender: FDA-Public Use
  Company Number: BR-PFIZER INC-2012111012

PATIENT
  Age: 80 Year
  Sex: Female

DRUGS (1)
  1. LIPITOR [Suspect]
     Indication: BLOOD CHOLESTEROL INCREASED
     Dosage: 20 MG, UNK
     Route: 048
     Dates: start: 20020101

REACTIONS (7)
  - SPINAL COLUMN INJURY [None]
  - BODY HEIGHT DECREASED [None]
  - VISION BLURRED [None]
  - MYALGIA [None]
  - FALL [None]
  - BACK PAIN [None]
  - DIARRHOEA [None]
